FAERS Safety Report 4791387-9 (Version None)
Quarter: 2005Q4

REPORT INFORMATION
  Report Type: 
  Country: None (occurrence: None)
  Receive Date: 20051007
  Receipt Date: 20050922
  Transmission Date: 20060501
  Serious: Yes (Hospitalization, Other)
  Sender: FDA-Public Use
  Company Number: US-MERCK-0509USA03346

PATIENT
  Age: 77 Year
  Sex: Female
  Weight: 82 kg

DRUGS (9)
  1. VIOXX [Suspect]
     Indication: PAIN
     Route: 048
     Dates: start: 20010201, end: 20030801
  2. TRIAMTERENE [Concomitant]
     Route: 065
  3. [THERAPY UNSPECIFIED] [Concomitant]
     Route: 065
  4. LIPITOR [Concomitant]
     Route: 065
  5. TRIMOX [Concomitant]
     Route: 065
  6. CEPHALEXIN [Concomitant]
     Route: 065
  7. PREDNISONE [Concomitant]
     Route: 065
  8. DIOVAN HCT [Concomitant]
     Route: 065
  9. METOPROLOL [Concomitant]
     Route: 065

REACTIONS (1)
  - CEREBROVASCULAR ACCIDENT [None]
